FAERS Safety Report 16639444 (Version 2)
Quarter: 2019Q3

REPORT INFORMATION
  Report Type: Spontaneous
  Country: FR (occurrence: FR)
  Receive Date: 20190726
  Receipt Date: 20190731
  Transmission Date: 20191004
  Serious: Yes (Other)
  Sender: FDA-Public Use
  Company Number: FR-ANIPHARMA-2019-FR-000169

PATIENT
  Age: 82 Year
  Sex: Female
  Weight: 52 kg

DRUGS (6)
  1. LOXAPAC [Suspect]
     Active Substance: LOXAPINE
     Dosage: 2 DF UNK
     Route: 048
     Dates: end: 20180612
  2. CANDESARTAN CILEXETIL. [Suspect]
     Active Substance: CANDESARTAN CILEXETIL
     Indication: HYPERTENSION
     Dosage: 16 MG DAILY
     Route: 048
     Dates: end: 20180621
  3. QUETIAPINE. [Suspect]
     Active Substance: QUETIAPINE
     Dosage: 300 MG DAILY
     Route: 048
     Dates: end: 20180604
  4. AMLODIPINE [Suspect]
     Active Substance: AMLODIPINE BESYLATE
     Dosage: 5 MG DAILY / DOSE TEXT: UNKNOWN INCREASED DOSE
     Route: 048
  5. LOXEN [NICARDIPINE HYDROCHLORIDE] [Suspect]
     Active Substance: NICARDIPINE HYDROCHLORIDE
     Dosage: 1 DF DAILY
     Route: 048
     Dates: end: 20180506
  6. PREGABALIN. [Suspect]
     Active Substance: PREGABALIN
     Dosage: 200 MG DAILY
     Route: 048
     Dates: end: 20180526

REACTIONS (1)
  - Fall [Unknown]

NARRATIVE: CASE EVENT DATE: 20180506
